FAERS Safety Report 4343271-2 (Version None)
Quarter: 2004Q1

REPORT INFORMATION
  Report Type: 
  Country: None (occurrence: None)
  Receive Date: 20040325
  Receipt Date: 20040211
  Transmission Date: 20041129
  Serious: No
  Sender: FDA-Public Use
  Company Number: USA031153345

PATIENT
  Age: 86 Year
  Sex: Female

DRUGS (2)
  1. FORTEO [Suspect]
     Indication: OSTEOPOROSIS
     Dosage: 20 UG/DAY
     Dates: start: 20031030
  2. ACTONEL [Concomitant]

REACTIONS (4)
  - AGITATION [None]
  - MUSCLE CRAMP [None]
  - TEARFULNESS [None]
  - TOOTH EXTRACTION [None]
